FAERS Safety Report 4918254-1 (Version None)
Quarter: 2006Q1

REPORT INFORMATION
  Report Type: 
  Country: None (occurrence: None)
  Receive Date: 20060222
  Receipt Date: 20060217
  Transmission Date: 20060701
  Serious: Yes (Hospitalization)
  Sender: FDA-Public Use
  Company Number: GB-SP-2006-00394

PATIENT
  Age: 74 Year
  Sex: Male

DRUGS (1)
  1. IMMUCYST [Suspect]
     Indication: BLADDER CANCER
     Dosage: 81 MG WEEKLY
     Route: 043
     Dates: start: 20060201

REACTIONS (1)
  - RETINAL HAEMORRHAGE [None]
